FAERS Safety Report 13755401 (Version 1)
Quarter: 2017Q3

REPORT INFORMATION
  Report Type: Spontaneous
  Country: US (occurrence: US)
  Receive Date: 20170714
  Receipt Date: 20170714
  Transmission Date: 20171127
  Serious: No
  Sender: FDA-Public Use
  Company Number: US-PFIZER INC-2017304023

PATIENT
  Age: 27 Year
  Sex: Female

DRUGS (6)
  1. GABAPENTIN. [Suspect]
     Active Substance: GABAPENTIN
     Indication: BEHCET^S SYNDROME
  2. GABAPENTIN. [Suspect]
     Active Substance: GABAPENTIN
     Indication: PSYCHOGENIC SEIZURE
  3. GABAPENTIN. [Suspect]
     Active Substance: GABAPENTIN
     Indication: ARTHRITIS
     Dosage: UNK
  4. GABAPENTIN. [Suspect]
     Active Substance: GABAPENTIN
     Indication: FIBROMYALGIA
  5. GABAPENTIN. [Suspect]
     Active Substance: GABAPENTIN
     Indication: GASTROINTESTINAL PAIN
  6. GABAPENTIN. [Suspect]
     Active Substance: GABAPENTIN
     Indication: SEIZURE

REACTIONS (7)
  - Drug ineffective [Unknown]
  - Alopecia [Unknown]
  - Fatigue [Unknown]
  - Vaginal lesion [Unknown]
  - Arthralgia [Unknown]
  - Dry throat [Unknown]
  - Stomatitis [Unknown]
